FAERS Safety Report 25925229 (Version 1)
Quarter: 2025Q4

REPORT INFORMATION
  Report Type: Spontaneous
  Country: AU (occurrence: AU)
  Receive Date: 20251015
  Receipt Date: 20251015
  Transmission Date: 20260117
  Serious: Yes (Other)
  Sender: ABBVIE
  Company Number: AU-ABBVIE-6502021

PATIENT

DRUGS (1)
  1. LUMIGAN [Suspect]
     Active Substance: BIMATOPROST
     Indication: Product used for unknown indication
     Dosage: PRESERVATIVE FREE?ROUTE: OPHTHALMIC
     Route: 065

REACTIONS (2)
  - Eye injury [Unknown]
  - Injury associated with device [Unknown]
